FAERS Safety Report 4440240-9 (Version None)
Quarter: 2004Q3

REPORT INFORMATION
  Report Type: 
  Country: None (occurrence: None)
  Receive Date: 20040831
  Receipt Date: 20040818
  Transmission Date: 20050211
  Serious: Yes (Hospitalization)
  Sender: FDA-Public Use
  Company Number: 2004CG01636

PATIENT
  Age: 71 Year
  Sex: Male

DRUGS (4)
  1. IRESSA [Suspect]
     Indication: NON-SMALL CELL LUNG CANCER RECURRENT
     Dosage: 250 MG DAILY PO
     Route: 048
     Dates: start: 20040624, end: 20040716
  2. CORDARONE [Suspect]
     Dosage: 200 MG DAILY PO
     Route: 048
  3. AMLOR [Suspect]
     Dosage: 5 MG DAILY PO
     Route: 048
  4. NITROGLYCERIN [Suspect]
     Dosage: 15 MG DAILY TD

REACTIONS (2)
  - DERMATITIS ACNEIFORM [None]
  - HAEMOPTYSIS [None]
